FAERS Safety Report 12505950 (Version 1)
Quarter: 2016Q2

REPORT INFORMATION
  Report Type: Spontaneous
  Country: US (occurrence: US)
  Receive Date: 20160628
  Receipt Date: 20160628
  Transmission Date: 20160815
  Serious: No
  Sender: FDA-Public Use
  Company Number: US-INCYTE CORPORATION-2016IN003698

PATIENT
  Sex: Female

DRUGS (1)
  1. JAKAFI [Suspect]
     Active Substance: RUXOLITINIB
     Indication: MYELOFIBROSIS
     Dosage: 10 MG, BID
     Route: 048

REACTIONS (5)
  - Haemoglobin decreased [Unknown]
  - Myeloproliferative neoplasm [Unknown]
  - White blood cell count increased [Recovering/Resolving]
  - Myelodysplastic syndrome [Unknown]
  - Platelet count increased [Recovering/Resolving]
